FAERS Safety Report 4701382-3 (Version None)
Quarter: 2005Q2

REPORT INFORMATION
  Report Type: 
  Country: None (occurrence: None)
  Receive Date: 20050627
  Receipt Date: 20050614
  Transmission Date: 20051028
  Serious: Yes (Other)
  Sender: FDA-Public Use
  Company Number: 200505009

PATIENT
  Age: 22 Year
  Sex: Female

DRUGS (5)
  1. ALESION     (EPINASTINE) [Suspect]
     Indication: SEASONAL ALLERGY
     Dosage: 20 MG DAILY PO
     Route: 048
     Dates: start: 20050301
  2. ASTRIC (ACICLOVIR) [Suspect]
     Indication: HERPES VIRUS INFECTION
     Dosage: 1000 MG DAILY PO
     Route: 048
  3. SEREVENT [Concomitant]
  4. KIPRES (MONTELUKAST) [Concomitant]
  5. THEO-DUR [Concomitant]

REACTIONS (3)
  - CONVULSION [None]
  - DYSPNOEA [None]
  - URTICARIA [None]
